FAERS Safety Report 7903748-7 (Version None)
Quarter: 2011Q4

REPORT INFORMATION
  Report Type: 
  Country: None (occurrence: None)
  Receive Date: 20111109
  Receipt Date: 20111104
  Transmission Date: 20120403
  Serious: Yes (Death, Other)
  Sender: FDA-Public Use
  Company Number: PHHY2011IL098366

PATIENT
  Age: 37 Year
  Sex: Female

DRUGS (6)
  1. TAMOXIFEN CITRATE [Suspect]
     Indication: METASTASES TO LIVER
  2. DOXORUBICIN HCL [Suspect]
     Indication: METASTASES TO LIVER
  3. GEMCITABINE [Suspect]
     Indication: METASTASES TO LIVER
  4. VINORELBINE [Suspect]
     Indication: METASTASES TO LIVER
  5. PACLITAXEL [Suspect]
     Indication: METASTASES TO LIVER
  6. CYCLOPHOSPHAMIDE [Suspect]
     Indication: METASTASES TO LIVER

REACTIONS (4)
  - METASTASES TO LUNG [None]
  - METASTASES TO BONE [None]
  - CARDIAC CIRRHOSIS [None]
  - HEPATIC FAILURE [None]
